FAERS Safety Report 10222696 (Version 1)
Quarter: 2014Q2

REPORT INFORMATION
  Report Type: Report from Study
  Country: CA (occurrence: CA)
  Receive Date: 20140606
  Receipt Date: 20140606
  Transmission Date: 20141212
  Serious: Yes (Other)
  Sender: FDA-Public Use
  Company Number: CA-ABBVIE-14P-028-1245120-00

PATIENT
  Age: 52 Year
  Sex: Male
  Weight: 116.22 kg

DRUGS (4)
  1. HUMIRA [Suspect]
     Indication: PSORIASIS
     Route: 058
     Dates: start: 20130822, end: 2014
  2. HUMIRA [Suspect]
     Route: 058
     Dates: start: 201405
  3. UNKNOWN MEDICATION [Concomitant]
     Indication: HYPERTENSION
  4. UNKNOWN MEDICATION [Concomitant]
     Indication: BLOOD CHOLESTEROL ABNORMAL

REACTIONS (3)
  - Mobility decreased [Recovered/Resolved]
  - Arthropathy [Recovering/Resolving]
  - Injection site pain [Recovered/Resolved]
